FAERS Safety Report 11029534 (Version 1)
Quarter: 2015Q2

REPORT INFORMATION
  Report Type: Spontaneous
  Country: US (occurrence: None)
  Receive Date: 20150413
  Receipt Date: 20150413
  Transmission Date: 20150821
  Serious: No
  Sender: FDA-Public Use
  Company Number: 2015-00038

PATIENT
  Age: 56 Year
  Sex: Male
  Weight: 99.79 kg

DRUGS (2)
  1. ZICAM COLD REMEDY RAPIDMELTS [Suspect]
     Active Substance: ZINC ACETATE ANHYDROUS\ZINC GLUCONATE
     Indication: NASOPHARYNGITIS
     Dosage: 1 RAPIDMELT ORALLY 3 TIMES DAILY
     Route: 048
     Dates: start: 20150404, end: 20150407
  2. UNSPECIFIED NASAL DECONGESTANT SPRAY [Concomitant]

REACTIONS (1)
  - Anosmia [None]

NARRATIVE: CASE EVENT DATE: 20150407
